FAERS Safety Report 9263208 (Version 3)
Quarter: 2013Q2

REPORT INFORMATION
  Report Type: Spontaneous
  Country: FR (occurrence: None)
  Receive Date: 20130426
  Receipt Date: 20130508
  Transmission Date: 20140414
  Serious: Yes (Hospitalization, Other)
  Sender: FDA-Public Use
  Company Number: INT_00249_2013

PATIENT
  Age: 59 Year
  Sex: Male

DRUGS (8)
  1. CEFTRIAXON [Suspect]
     Indication: BRAIN ABSCESS
     Route: 042
  2. CEFTRIAXON [Suspect]
     Route: 042
  3. LISINOPRIL [Concomitant]
  4. ENOXAPARIN [Concomitant]
  5. PANTOPRAZOL [Concomitant]
  6. CEFOTAXIM [Concomitant]
  7. METRONIDAZOL [Concomitant]
  8. FOSFOMYCIN [Concomitant]

REACTIONS (1)
  - Hoigne^s syndrome [None]
